FAERS Safety Report 11879960 (Version 3)
Quarter: 2016Q1

REPORT INFORMATION
  Report Type: Spontaneous
  Country: US (occurrence: US)
  Receive Date: 20151230
  Receipt Date: 20160203
  Transmission Date: 20160526
  Serious: Yes (Other)
  Sender: FDA-Public Use
  Company Number: US-BAYER-2015-496723

PATIENT
  Age: 82 Year
  Sex: Male

DRUGS (20)
  1. XTANDI [Suspect]
     Active Substance: ENZALUTAMIDE
     Indication: PROSTATE CANCER
     Dosage: 80 MG, QD
     Route: 048
  2. XTANDI [Suspect]
     Active Substance: ENZALUTAMIDE
     Indication: PROSTATE CANCER
     Dosage: 160 MG, QD
     Route: 048
     Dates: start: 20141103, end: 20150219
  3. NORVASC [Concomitant]
     Active Substance: AMLODIPINE BESYLATE
  4. XGEVA [Concomitant]
     Active Substance: DENOSUMAB
  5. XTANDI [Suspect]
     Active Substance: ENZALUTAMIDE
     Indication: PROSTATE CANCER
     Dosage: 40 MG ONCE DAILY
     Route: 048
  6. XOFIGO [Suspect]
     Active Substance: RADIUM RA-223 DICHLORIDE
     Indication: PROSTATE CANCER
     Dosage: MONTHLY
     Dates: start: 20150709
  7. XTANDI [Suspect]
     Active Substance: ENZALUTAMIDE
     Indication: PROSTATE CANCER
     Dosage: 120 MG, QD
     Route: 048
  8. XOFIGO [Suspect]
     Active Substance: RADIUM RA-223 DICHLORIDE
     Indication: PROSTATE CANCER
     Dosage: MONTHLY
     Dates: start: 20150910
  9. XOFIGO [Suspect]
     Active Substance: RADIUM RA-223 DICHLORIDE
     Indication: PROSTATE CANCER
     Dosage: MONTHLY
     Dates: start: 20151008
  10. XOFIGO [Suspect]
     Active Substance: RADIUM RA-223 DICHLORIDE
     Indication: PROSTATE CANCER
     Dosage: MONTHLY
     Dates: start: 20151117
  11. XTANDI [Suspect]
     Active Substance: ENZALUTAMIDE
     Indication: METASTASES TO ABDOMINAL WALL
     Dosage: 120 MG, QD (40 MG IN THE MORNING AND 80 MG IN THE EVENING)
     Route: 048
  12. XTANDI [Suspect]
     Active Substance: ENZALUTAMIDE
     Indication: PROSTATE CANCER
     Dosage: 120 MG, QD  (3X40 MG)
     Route: 048
     Dates: start: 20150220
  13. CALCIUM [Concomitant]
     Active Substance: CALCIUM
  14. ZOMETA [Concomitant]
     Active Substance: ZOLEDRONIC ACID
  15. XTANDI [Suspect]
     Active Substance: ENZALUTAMIDE
     Indication: PROSTATE CANCER
     Dosage: 160 MG, QD
     Route: 048
     Dates: start: 201511
  16. XTANDI [Suspect]
     Active Substance: ENZALUTAMIDE
     Indication: PROSTATE CANCER
     Dosage: 160 MG, QD
     Route: 048
     Dates: start: 201511
  17. XOFIGO [Suspect]
     Active Substance: RADIUM RA-223 DICHLORIDE
     Indication: PROSTATE CANCER
     Dosage: MONTHLY
     Dates: start: 20150813
  18. XOFIGO [Suspect]
     Active Substance: RADIUM RA-223 DICHLORIDE
     Indication: PROSTATE CANCER
     Dosage: MONTHLY
     Dates: start: 20151229
  19. LUPRON [Concomitant]
     Active Substance: LEUPROLIDE ACETATE
  20. PREDNISONE. [Concomitant]
     Active Substance: PREDNISONE

REACTIONS (3)
  - Vision blurred [None]
  - Headache [Recovered/Resolved]
  - Diplopia [None]
